FAERS Safety Report 4374057-0 (Version None)
Quarter: 2004Q2

REPORT INFORMATION
  Report Type: 
  Country: None (occurrence: None)
  Receive Date: 20040604
  Receipt Date: 20040524
  Transmission Date: 20050107
  Serious: Yes (Other)
  Sender: FDA-Public Use
  Company Number: HQWYE131027MAY04

PATIENT
  Sex: Female

DRUGS (7)
  1. PREMPRO [Suspect]
     Indication: HORMONE REPLACEMENT THERAPY
     Dosage: ORAL
     Route: 048
  2. CYCRIN [Suspect]
     Indication: HORMONE REPLACEMENT THERAPY
  3. ESTRADERM [Suspect]
     Indication: OESTROGEN REPLACEMENT THERAPY
  4. ESTROGENS (ESTROGENS, ) [Suspect]
     Indication: OESTROGEN REPLACEMENT THERAPY
  5. MEDROXYPROGESTERONE [Suspect]
     Indication: HORMONE REPLACEMENT THERAPY
  6. PREMARIN [Suspect]
     Indication: OESTROGEN REPLACEMENT THERAPY
     Dosage: ORAL
     Route: 048
  7. PROVERA [Suspect]
     Indication: HORMONE REPLACEMENT THERAPY
     Dosage: ORAL
     Route: 048

REACTIONS (5)
  - BREAST CANCER [None]
  - HAEMORRHAGE [None]
  - HYSTERECTOMY [None]
  - METASTASES TO LYMPH NODES [None]
  - OESTROGEN RECEPTOR ASSAY POSITIVE [None]
